FAERS Safety Report 5493508-1 (Version None)
Quarter: 2007Q4

REPORT INFORMATION
  Report Type: 
  Country: None (occurrence: None)
  Receive Date: 20071019
  Receipt Date: 20071001
  Transmission Date: 20080405
  Serious: Yes (Hospitalization)
  Sender: FDA-Public Use
  Company Number: ENT 2006-0110

PATIENT
  Age: 78 Year
  Sex: Male

DRUGS (6)
  1. ENTACAPONE [Suspect]
     Indication: PARKINSON'S DISEASE
     Dosage: 2 DF 1/1 DAYS
     Route: 048
     Dates: start: 20060601
  2. SINEMET [Concomitant]
  3. CITALOPRAM HYDROBROMIDE [Concomitant]
  4. QUETIAPINE FUMARATE [Concomitant]
  5. GLICLAZIDE [Concomitant]
  6. ACETAMINOPHEN [Concomitant]

REACTIONS (1)
  - FAECES DISCOLOURED [None]
